FAERS Safety Report 10235785 (Version 2)
Quarter: 2014Q2

REPORT INFORMATION
  Report Type: Report from Study
  Country: NO (occurrence: NO)
  Receive Date: 20140613
  Receipt Date: 20140623
  Transmission Date: 20141212
  Serious: Yes (Death, Other)
  Sender: FDA-Public Use
  Company Number: NO-PFIZER INC-2014156420

PATIENT
  Age: 46 Year
  Sex: Male

DRUGS (14)
  1. CYTARABINE [Suspect]
     Indication: PRECURSOR T-LYMPHOBLASTIC LYMPHOMA/LEUKAEMIA
     Dosage: 200 MG/M2,(DAYS 43-47)
     Route: 042
  2. CYTARABINE [Suspect]
     Dosage: 40 MG, (DAYS 78, 92, 106)
     Route: 037
  3. DOXORUBICIN HCL [Suspect]
     Indication: PRECURSOR T-LYMPHOBLASTIC LYMPHOMA/LEUKAEMIA
     Dosage: 30 MG/M2, (DAYS 8, 15, AND 22)
     Route: 042
  4. METHOTREXATE SODIUM [Suspect]
     Indication: PRECURSOR T-LYMPHOBLASTIC LYMPHOMA/LEUKAEMIA
     Dosage: 15 MG, (DAYS 15, 29, 43, 64)
     Route: 037
  5. METHOTREXATE SODIUM [Suspect]
     Dosage: 1500 MG/M2,(DAYS 64 AND 78)
     Route: 042
  6. DAUNORUBICIN [Suspect]
     Indication: PRECURSOR T-LYMPHOBLASTIC LYMPHOMA/LEUKAEMIA
     Dosage: 50 MG/M2,(DAYS 43, 45, AND 47)
     Route: 042
  7. MERCAPTOPURINE [Suspect]
     Indication: PRECURSOR T-LYMPHOBLASTIC LYMPHOMA/LEUKAEMIA
     Dosage: 35 MG/M2, (DAYS 64-111)
     Route: 042
  8. L-ASPARAGINASE [Suspect]
     Indication: PRECURSOR T-LYMPHOBLASTIC LYMPHOMA/LEUKAEMIA
     Dosage: 10000 IU, (DAYS 8-21)
     Route: 042
  9. THIOGUANINE [Suspect]
     Indication: PRECURSOR T-LYMPHOBLASTIC LYMPHOMA/LEUKAEMIA
     Dosage: 150 MG/M2, (DAYS 43-47)
     Route: 042
  10. CYCLOPHOSPHAMIDE [Suspect]
     Indication: PRECURSOR T-LYMPHOBLASTIC LYMPHOMA/LEUKAEMIA
     Dosage: 750 MG/M2,(DAYS 15, 22, AND 29)
     Route: 042
  11. GRANULOCYTE COLONY-STIMULATING FACTOR NOS [Suspect]
     Indication: PERIPHERAL BLOOD STEM CELL APHERESIS
     Dosage: 10 MCG/KG/DAY
  12. PREDNISOLONE [Suspect]
     Indication: PRECURSOR T-LYMPHOBLASTIC LYMPHOMA/LEUKAEMIA
     Dosage: 40 MG/M2, (DAY 1-29, TAPER TO DAY 35)
     Route: 048
  13. PREDNISOLONE [Suspect]
     Dosage: 10 MG, UNK
     Route: 037
  14. VINCRISTINE SULFATE [Suspect]
     Indication: PRECURSOR T-LYMPHOBLASTIC LYMPHOMA/LEUKAEMIA
     Dosage: 1.5 MG/M2, MAX 2.0 MG (DAYS 1, 8, 15, 22, AND 29)
     Route: 042

REACTIONS (1)
  - Multi-organ failure [Fatal]
